FAERS Safety Report 9996279 (Version 1)
Quarter: 2014Q1

REPORT INFORMATION
  Report Type: Spontaneous
  Country: US (occurrence: None)
  Receive Date: 20140310
  Receipt Date: 20140310
  Transmission Date: 20141002
  Serious: Yes (Life-Threatening)
  Sender: FDA-Public Use
  Company Number: None

PATIENT
  Age: 45 Year
  Sex: Male
  Weight: 122.02 kg

DRUGS (1)
  1. ETOMIDATE [Suspect]
     Indication: ANAESTHESIA
     Dates: start: 20140307, end: 20140307

REACTIONS (2)
  - Product quality issue [None]
  - Heart rate decreased [None]
